FAERS Safety Report 5006937-7 (Version None)
Quarter: 2006Q2

REPORT INFORMATION
  Report Type: 
  Country: None (occurrence: None)
  Receive Date: 20060519
  Receipt Date: 20041127
  Transmission Date: 20061013
  Serious: Yes (Other)
  Sender: FDA-Public Use
  Company Number: PH-NOVOPROD-240779

PATIENT
  Age: 19 Year
  Sex: Male
  Weight: 35 kg

DRUGS (2)
  1. NOVOSEVEN [Suspect]
     Indication: HAEMOPHILIA
     Dosage: UNK, UNK
     Dates: start: 20041011
  2. HEMOSTAN [Concomitant]

REACTIONS (6)
  - CHILLS [None]
  - COUGH [None]
  - HEADACHE [None]
  - PYREXIA [None]
  - VIRAL INFECTION [None]
  - VOMITING [None]
